FAERS Safety Report 15589898 (Version 1)
Quarter: 2018Q4

REPORT INFORMATION
  Report Type: Spontaneous
  Country: US (occurrence: US)
  Receive Date: 20181106
  Receipt Date: 20181106
  Transmission Date: 20190205
  Serious: Yes (Hospitalization)
  Sender: FDA-Public Use
  Company Number: US-BAYER-2018-201421

PATIENT
  Age: 50 Year
  Sex: Female

DRUGS (2)
  1. HYDRAZIDE [HYDROCHLOROTHIAZIDE] [Concomitant]
     Dosage: UNK
  2. ALEVE [Suspect]
     Active Substance: NAPROXEN SODIUM
     Indication: PAIN
     Dosage: 1 DF, QD
     Route: 048
     Dates: start: 2016, end: 201810

REACTIONS (3)
  - Gastric haemorrhage [Recovered/Resolved]
  - Anastomotic ulcer [Not Recovered/Not Resolved]
  - Incorrect product administration duration [Unknown]

NARRATIVE: CASE EVENT DATE: 2016
